FAERS Safety Report 8302907-1 (Version None)
Quarter: 2012Q2

REPORT INFORMATION
  Report Type: 
  Country: None (occurrence: None)
  Receive Date: 20120420
  Receipt Date: 20120416
  Transmission Date: 20120825
  Serious: Yes (Hospitalization)
  Sender: FDA-Public Use
  Company Number: FR-ABBOTT-12P-056-0926152-00

PATIENT
  Sex: Male

DRUGS (1)
  1. DEPAKENE [Suspect]
     Indication: EPILEPSY
     Dosage: DAILY; GASTRO-RESISTANT TABLET
     Route: 048
     Dates: start: 20020101, end: 20120309

REACTIONS (2)
  - PANCREATITIS ACUTE [None]
  - LIPASE ABNORMAL [None]
